FAERS Safety Report 6467972-5 (Version None)
Quarter: 2009Q4

REPORT INFORMATION
  Report Type: 
  Country: None (occurrence: None)
  Receive Date: 20091127
  Receipt Date: 20091113
  Transmission Date: 20100525
  Serious: Yes (Hospitalization)
  Sender: FDA-Public Use
  Company Number: 2009001899

PATIENT
  Age: 61 Year
  Sex: Male

DRUGS (13)
  1. ERLOTINIB HYDROCHLORIDE [Suspect]
     Indication: NEOPLASM MALIGNANT
     Dosage: 150 MG, QD, ORAL
     Route: 048
     Dates: start: 20090101
  2. DOCETAXEL [Suspect]
     Indication: LUNG NEOPLASM MALIGNANT
     Dosage: 75 MG/M2, Q3W, INTRAVENOUS
     Route: 042
     Dates: start: 20081229, end: 20090525
  3. ACENOCOUMAROL          (ACENOCOUMAROL) [Suspect]
     Indication: HEART VALVE REPLACEMENT
     Dosage: ORAL
     Route: 048
     Dates: start: 20040101
  4. NEBIVOLOL HCL [Concomitant]
  5. FRUMIL           (FRUMIL) [Concomitant]
  6. PROCORALAN [Concomitant]
  7. SPIRVIA [Concomitant]
  8. SYMBICORT (SYMBICORT) [Concomitant]
  9. FENISTIL (DIMETINDENE MALEATE) [Concomitant]
  10. DEXAMETHASONE TAB [Concomitant]
  11. ZOFRON (ONDANSETRON HYDROCHLORIDE) [Concomitant]
  12. CIPRALEX [Concomitant]
  13. INNOEP (HEPARIN-FRACTION, SODIUM SALT) [Concomitant]

REACTIONS (4)
  - DRUG INTERACTION [None]
  - FEBRILE NEUTROPENIA [None]
  - HAEMOPTYSIS [None]
  - INTERNATIONAL NORMALISED RATIO INCREASED [None]
